FAERS Safety Report 4505723-1 (Version None)
Quarter: 2004Q4

REPORT INFORMATION
  Report Type: 
  Country: None (occurrence: None)
  Receive Date: 20041025
  Receipt Date: 20040114
  Transmission Date: 20050328
  Serious: Yes (Other)
  Sender: FDA-Public Use
  Company Number: US-JNJFOC-20031204049

PATIENT
  Age: 75 Year
  Sex: Female
  Weight: 65 kg

DRUGS (1)
  1. REMICADE [Suspect]
     Dosage: 300 MG INTRAVENOUS
     Route: 042
     Dates: start: 20031212, end: 20031212

REACTIONS (2)
  - HYPOTENSION [None]
  - INFUSION RELATED REACTION [None]
